FAERS Safety Report 4278069-7 (Version None)
Quarter: 2004Q1

REPORT INFORMATION
  Report Type: 
  Country: None (occurrence: None)
  Receive Date: 20040121
  Receipt Date: 19990207
  Transmission Date: 20041129
  Serious: No
  Sender: FDA-Public Use
  Company Number: 7184

PATIENT
  Age: 64 Year
  Sex: Male

DRUGS (2)
  1. METHOTREXATE [Suspect]
     Indication: RHEUMATOID ARTHRITIS
     Dosage: 20 MG WEEKLY PO
     Route: 048
  2. FOLIC ACID [Concomitant]

REACTIONS (2)
  - LENTIGO MALIGNA STAGE I [None]
  - MALIGNANT MELANOMA [None]
